FAERS Safety Report 14007554 (Version 1)
Quarter: 2017Q3

REPORT INFORMATION
  Report Type: Spontaneous
  Country: None (occurrence: IL)
  Receive Date: 20170925
  Receipt Date: 20170925
  Transmission Date: 20171128
  Serious: Yes (Congenital Anomaly, Other)
  Sender: FDA-Public Use
  Company Number: IL-LUPIN PHARMACEUTICALS INC.-2017-05512

PATIENT
  Sex: Male
  Weight: 3.75 kg

DRUGS (2)
  1. FOLIC ACID. [Concomitant]
     Active Substance: FOLIC ACID
     Indication: PRODUCT USED FOR UNKNOWN INDICATION
     Dosage: 5 MG, QD
     Route: 064
  2. LAMOTRIGINE. [Suspect]
     Active Substance: LAMOTRIGINE
     Indication: EPILEPSY
     Dosage: 150 MG, QD
     Route: 064

REACTIONS (4)
  - Pulmonary artery stenosis congenital [Recovered/Resolved]
  - Ventricular septal defect [Recovered/Resolved]
  - Foetal exposure during pregnancy [Unknown]
  - Atrial septal defect [Recovered/Resolved]
